FAERS Safety Report 11967614 (Version 2)
Quarter: 2016Q1

REPORT INFORMATION
  Report Type: Spontaneous
  Country: US (occurrence: US)
  Receive Date: 20160127
  Receipt Date: 20160201
  Transmission Date: 20160526
  Serious: Yes (Other)
  Sender: FDA-Public Use
  Company Number: US-BAXTER-2016BAX003931

PATIENT
  Age: 62 Year
  Sex: Male

DRUGS (14)
  1. BRETYLIUM [Suspect]
     Active Substance: BRETYLIUM TOSYLATE
     Indication: VENTRICULAR FIBRILLATION
     Route: 042
  2. GLUCOSE, MONOHYDRATE; LIDOCAINE, HYDROCHLORIDE, MONOHYDRATE_GLUCOSE, M [Suspect]
     Active Substance: DEXTROSE\LIDOCAINE HYDROCHLORIDE
     Indication: VENTRICULAR EXTRASYSTOLES
     Route: 065
  3. LASIX [Concomitant]
     Active Substance: FUROSEMIDE
     Indication: PRODUCT USED FOR UNKNOWN INDICATION
     Route: 065
  4. ISOFLURANE. [Concomitant]
     Active Substance: ISOFLURANE
     Indication: HAEMODYNAMIC INSTABILITY
     Route: 065
  5. FENTANYL. [Concomitant]
     Active Substance: FENTANYL
     Indication: ANAESTHESIA
     Route: 065
  6. DOPAMINE HYDROCHLORIDE AND DEXTROSE [Suspect]
     Active Substance: DOPAMINE HYDROCHLORIDE
     Indication: POSTOPERATIVE CARE
     Route: 065
  7. POTASSIUM CHLORIDE. [Suspect]
     Active Substance: POTASSIUM CHLORIDE
     Indication: SUPPLEMENTATION THERAPY
     Route: 042
  8. NITROGLYCERINE [Concomitant]
     Active Substance: NITROGLYCERIN
     Indication: ELECTROCARDIOGRAM ST SEGMENT ELEVATION
     Route: 042
  9. EPINEPHRINE. [Suspect]
     Active Substance: EPINEPHRINE
     Indication: POSTOPERATIVE CARE
     Route: 065
  10. PANCURONIUM [Concomitant]
     Active Substance: PANCURONIUM
     Indication: ANAESTHESIA
     Route: 065
  11. DIGOXIN. [Suspect]
     Active Substance: DIGOXIN
     Indication: ATRIAL FIBRILLATION
     Route: 042
  12. INDERAL [Concomitant]
     Active Substance: PROPRANOLOL HYDROCHLORIDE
     Indication: PRODUCT USED FOR UNKNOWN INDICATION
     Route: 065
  13. PROCARDIA [Concomitant]
     Active Substance: NIFEDIPINE
     Indication: PRODUCT USED FOR UNKNOWN INDICATION
     Route: 065
  14. ISORDIL [Concomitant]
     Active Substance: ISOSORBIDE DINITRATE
     Indication: PRODUCT USED FOR UNKNOWN INDICATION
     Route: 065

REACTIONS (8)
  - Drug resistance [Recovered/Resolved]
  - Ventricular fibrillation [None]
  - Ventricular tachycardia [None]
  - Arrhythmia [Recovered/Resolved]
  - Atrial fibrillation [None]
  - Torsade de pointes [None]
  - Post procedural complication [None]
  - Ventricular extrasystoles [None]
